FAERS Safety Report 20721620 (Version 5)
Quarter: 2022Q2

REPORT INFORMATION
  Report Type: Report from Study
  Country: US (occurrence: US)
  Receive Date: 20220418
  Receipt Date: 20220602
  Transmission Date: 20220720
  Serious: No
  Sender: FDA-Public Use
  Company Number: US-DSJP-DSU-2022-113364AA

PATIENT
  Sex: Female

DRUGS (2)
  1. PEXIDARTINIB [Suspect]
     Active Substance: PEXIDARTINIB
     Indication: Giant cell tumour of tendon sheath
     Dosage: 400 MG, BID
     Route: 048
     Dates: start: 20220316
  2. PEXIDARTINIB [Suspect]
     Active Substance: PEXIDARTINIB
     Dosage: 200 MG, BID
     Route: 048

REACTIONS (6)
  - Liver function test increased [Recovered/Resolved]
  - Sialoadenitis [Recovered/Resolved]
  - Taste disorder [Recovered/Resolved]
  - White blood cell count decreased [Recovered/Resolved]
  - Ageusia [Recovered/Resolved]
  - Therapeutic product effect incomplete [Unknown]

NARRATIVE: CASE EVENT DATE: 20220101
